FAERS Safety Report 20869091 (Version 3)
Quarter: 2022Q4

REPORT INFORMATION
  Report Type: Other
  Country: CH (occurrence: None)
  Receive Date: 20220524
  Receipt Date: 20221215
  Transmission Date: 20230112
  Serious: Yes (Hospitalization)
  Sender: FDA-Public Use
  Company Number: CH-ROCHE-3093987

PATIENT
  Age: 2 Year
  Sex: Male
  Weight: 15 kg

DRUGS (17)
  1. EMICIZUMAB [Suspect]
     Active Substance: EMICIZUMAB
     Indication: Haemophilia A without inhibitors
     Route: 058
     Dates: start: 20210817, end: 20210907
  2. EMICIZUMAB [Suspect]
     Active Substance: EMICIZUMAB
     Route: 058
     Dates: start: 20210921
  3. CYKLOKAPRON [Concomitant]
     Active Substance: TRANEXAMIC ACID
     Indication: Factor VIII deficiency
     Route: 048
     Dates: start: 20210426, end: 20210430
  4. ANTIHEMOPHILIC FACTOR HUMAN [Concomitant]
     Active Substance: ANTIHEMOPHILIC FACTOR HUMAN
     Route: 042
     Dates: start: 20210426, end: 20210426
  5. ANTIHEMOPHILIC FACTOR HUMAN [Concomitant]
     Active Substance: ANTIHEMOPHILIC FACTOR HUMAN
     Route: 042
     Dates: start: 20210705, end: 20210705
  6. ANTIHEMOPHILIC FACTOR HUMAN [Concomitant]
     Active Substance: ANTIHEMOPHILIC FACTOR HUMAN
     Route: 042
     Dates: start: 20210726, end: 20210729
  7. ANTIHEMOPHILIC FACTOR HUMAN [Concomitant]
     Active Substance: ANTIHEMOPHILIC FACTOR HUMAN
     Route: 042
     Dates: start: 20210804, end: 20210804
  8. ANTIHEMOPHILIC FACTOR HUMAN [Concomitant]
     Active Substance: ANTIHEMOPHILIC FACTOR HUMAN
     Route: 042
     Dates: start: 20210811, end: 20210811
  9. ANTIHEMOPHILIC FACTOR HUMAN [Concomitant]
     Active Substance: ANTIHEMOPHILIC FACTOR HUMAN
     Route: 042
     Dates: start: 20210813, end: 20210813
  10. PRIORIX [Concomitant]
     Active Substance: MEASLES-MUMPS-RUBELLA VIRUS VACCINE
     Indication: Prophylaxis
     Route: 058
     Dates: start: 20210816, end: 20210816
  11. MALTOFER [Concomitant]
     Route: 048
     Dates: start: 20210929, end: 20220504
  12. MALTOFER [Concomitant]
     Route: 048
     Dates: start: 20221115
  13. AMOXICILLIN [Concomitant]
     Active Substance: AMOXICILLIN
     Route: 048
     Dates: start: 20211025, end: 20211030
  14. AMOXICILLIN [Concomitant]
     Active Substance: AMOXICILLIN
     Route: 048
     Dates: start: 20210107, end: 20210117
  15. ACETAMINOPHEN [Concomitant]
     Active Substance: ACETAMINOPHEN
     Route: 054
     Dates: start: 20211025, end: 20211025
  16. ACETAMINOPHEN [Concomitant]
     Active Substance: ACETAMINOPHEN
     Route: 054
     Dates: start: 20220107, end: 20220107
  17. MOVICOL [Concomitant]
     Active Substance: POLYETHYLENE GLYCOL 3350\POTASSIUM CHLORIDE\SODIUM BICARBONATE\SODIUM CHLORIDE
     Route: 048
     Dates: start: 20210824, end: 20220224

REACTIONS (1)
  - COVID-19 [Recovered/Resolved]

NARRATIVE: CASE EVENT DATE: 20220107
